FAERS Safety Report 10877900 (Version 1)
Quarter: 2015Q1

REPORT INFORMATION
  Report Type: Spontaneous
  Country: US (occurrence: None)
  Receive Date: 20150224
  Receipt Date: 20150224
  Transmission Date: 20150721
  Serious: Yes (Disabling)
  Sender: FDA-Public Use
  Company Number: None

PATIENT
  Age: 68 Year
  Sex: Female
  Weight: 60.33 kg

DRUGS (1)
  1. PROLIA [Suspect]
     Active Substance: DENOSUMAB
     Indication: OSTEOPOROSIS
     Dosage: 60 MG INJECTION, ONE/6 MONTHS
     Dates: start: 20140123, end: 20150124

REACTIONS (5)
  - Burning sensation [None]
  - Pruritus [None]
  - Rash generalised [None]
  - Skin exfoliation [None]
  - Rash pruritic [None]

NARRATIVE: CASE EVENT DATE: 20141216
